FAERS Safety Report 7831873-8 (Version None)
Quarter: 2011Q4

REPORT INFORMATION
  Report Type: 
  Country: None (occurrence: None)
  Receive Date: 20111021
  Receipt Date: 20111017
  Transmission Date: 20120403
  Serious: Yes (Hospitalization, Other)
  Sender: FDA-Public Use
  Company Number: GB-B.I. PHARMACEUTICALS,INC./RIDGEFIELD-2011-UK-00999UK

PATIENT
  Sex: Female

DRUGS (9)
  1. GLUCOSAMINE [Concomitant]
     Dosage: REPORTED AS 'HIGH STRENGH'
     Route: 048
  2. ORLISTAT [Concomitant]
     Dosage: 120 MG
  3. OXYCODONE MODIFIED RELEASE [Concomitant]
     Dosage: 10 MG
  4. FENTANYL [Concomitant]
     Dosage: VARIED
     Route: 042
  5. OXYCODONE IMMEDIATE RELEASE [Concomitant]
     Dosage: 5 MG
  6. SIMVASTATIN [Concomitant]
     Dosage: 20 MG
     Route: 048
  7. MORPHINE SULPHATE IMMEDIATE RELEASE TABLET [Concomitant]
     Dosage: 10 MG
  8. CYCLIZINE [Concomitant]
     Dosage: 50 MG
  9. DABIGATRAN [Suspect]
     Indication: THROMBOSIS PROPHYLAXIS
     Dosage: 110 MG
     Route: 048
     Dates: start: 20110914, end: 20110914

REACTIONS (1)
  - PULMONARY EMBOLISM [None]
